FAERS Safety Report 7303436-4 (Version None)
Quarter: 2011Q1

REPORT INFORMATION
  Report Type: 
  Country: None (occurrence: None)
  Receive Date: 20110221
  Receipt Date: 20110209
  Transmission Date: 20110831
  Serious: Yes (Hospitalization)
  Sender: FDA-Public Use
  Company Number: US-ELI_LILLY_AND_COMPANY-US201102002838

PATIENT
  Sex: Male
  Weight: 58.63 kg

DRUGS (12)
  1. GEMCITABINE HYDROCHLORIDE [Suspect]
     Indication: NON-SMALL CELL LUNG CANCER METASTATIC
     Dosage: 1000 MG/M2, UNK
     Route: 042
     Dates: start: 20100924, end: 20101126
  2. CETUXIMAB [Suspect]
     Indication: NON-SMALL CELL LUNG CANCER METASTATIC
     Dosage: 400 MG/M2, UNK
     Route: 042
     Dates: start: 20100924, end: 20101203
  3. CIXUTUMUMAB [Suspect]
     Indication: NON-SMALL CELL LUNG CANCER METASTATIC
     Dosage: 6 MG/KG, UNK
     Route: 042
     Dates: start: 20100924, end: 20101203
  4. CISPLATIN [Suspect]
     Indication: NON-SMALL CELL LUNG CANCER METASTATIC
     Dosage: 75 MG/M2, UNK
     Route: 042
     Dates: start: 20100924, end: 20101119
  5. ZOFRAN [Concomitant]
     Dosage: 4 MG, 3/D
     Route: 048
  6. PRILOSEC [Concomitant]
     Dosage: 20 MG, DAILY (1/D)
  7. METFORMIN [Concomitant]
     Dosage: 500 MG, 2/D
     Route: 048
  8. CLOTRIMAZOLE [Concomitant]
     Indication: PAIN
     Dosage: 10 MG, AS NEEDED
     Route: 048
  9. MECLIZINE [Concomitant]
     Indication: NAUSEA
     Dosage: 25 MG, AS NEEDED
     Route: 048
  10. ZOCOR [Concomitant]
     Dosage: 20 MG, EACH EVENING
     Route: 048
  11. AMARYL [Concomitant]
     Dosage: 2 MG, DAILY (1/D)
     Route: 048
  12. DEXAMETHASONE [Concomitant]
     Dosage: 2 MG, 2/D
     Route: 048

REACTIONS (1)
  - DEHYDRATION [None]
